FAERS Safety Report 13060130 (Version 1)
Quarter: 2016Q4

REPORT INFORMATION
  Report Type: Spontaneous
  Country: US (occurrence: US)
  Receive Date: 20161223
  Receipt Date: 20161223
  Transmission Date: 20170207
  Serious: Yes (Other)
  Sender: FDA-Public Use
  Company Number: US-BRISTOL-MYERS SQUIBB COMPANY-BMS-2016-107997

PATIENT
  Sex: Female

DRUGS (2)
  1. PREDNISONE. [Concomitant]
     Active Substance: PREDNISONE
     Indication: PRODUCT USED FOR UNKNOWN INDICATION
     Route: 065
  2. KENALOG-10 [Suspect]
     Active Substance: TRIAMCINOLONE ACETONIDE
     Indication: DERMATITIS CONTACT
     Route: 065
     Dates: start: 20160925

REACTIONS (10)
  - Insomnia [Unknown]
  - Hypertension [Unknown]
  - Blood glucose abnormal [Unknown]
  - Product use issue [Unknown]
  - Cardiac flutter [Unknown]
  - Tremor [Unknown]
  - Dizziness [Unknown]
  - Nervousness [Unknown]
  - Abdominal discomfort [Unknown]
  - Panic attack [Unknown]
